FAERS Safety Report 8282999-9 (Version None)
Quarter: 2012Q2

REPORT INFORMATION
  Report Type: 
  Country: None (occurrence: None)
  Receive Date: 20120413
  Receipt Date: 20120329
  Transmission Date: 20120825
  Serious: Yes (Hospitalization, Other)
  Sender: FDA-Public Use
  Company Number: JP-ROCHE-1043622

PATIENT
  Sex: Male
  Weight: 65 kg

DRUGS (17)
  1. CISPLATIN [Suspect]
     Indication: GASTRIC CANCER RECURRENT
     Dosage: 60MG-120MG
     Route: 041
     Dates: start: 20110414, end: 20110921
  2. LOPERAMIDE HCL [Concomitant]
     Indication: DIARRHOEA
     Dosage: TAKEN AS NEEDED
     Route: 048
     Dates: start: 20101124
  3. XELODA [Suspect]
     Dosage: 2 WEEKS ADMINISTRATION FOLLOWED BY 1 WEEK REST
     Route: 048
     Dates: start: 20110803
  4. EMEND [Concomitant]
     Route: 048
     Dates: start: 20110623, end: 20110624
  5. DECADRON [Concomitant]
     Indication: PROPHYLAXIS
     Route: 048
     Dates: start: 20110414, end: 20110924
  6. GRANISETRON [Concomitant]
     Indication: PROPHYLAXIS
     Route: 041
     Dates: start: 20110414, end: 20110921
  7. ALLOPURINOL [Concomitant]
     Indication: HYPERURICAEMIA
     Route: 048
     Dates: start: 20030101, end: 20110713
  8. VOLTAREN [Concomitant]
     Indication: PAIN
     Dosage: TAKEN AS NEEDED
     Route: 048
     Dates: start: 20100412
  9. GOSHA-JINKI-GAN [Concomitant]
     Indication: NEUROPATHY PERIPHERAL
     Route: 048
     Dates: start: 20100818
  10. EMEND [Concomitant]
     Route: 048
     Dates: start: 20110924
  11. HYDROCORTISONE SODIUM SUCCINATE [Concomitant]
     Indication: PROPHYLAXIS
     Route: 042
     Dates: start: 20110414
  12. XELODA [Suspect]
     Indication: GASTRIC CANCER RECURRENT
     Dosage: 2 WEEKS ADMINISTRATION FOLLOWED BY 1 WEEK REST
     Route: 048
     Dates: start: 20110414, end: 20110706
  13. HERCEPTIN [Suspect]
     Route: 041
     Dates: start: 20110511, end: 20110622
  14. HERCEPTIN [Suspect]
     Route: 041
     Dates: start: 20110803
  15. EMEND [Concomitant]
     Indication: PROPHYLAXIS OF NAUSEA AND VOMITING
     Route: 048
     Dates: start: 20110419, end: 20110622
  16. HERCEPTIN [Suspect]
     Indication: GASTRIC CANCER RECURRENT
     Route: 041
     Dates: start: 20110414, end: 20110414
  17. DEXAMETHASONE SODIUM PHOSPHATE [Concomitant]
     Indication: PROPHYLAXIS
     Route: 041
     Dates: start: 20110414, end: 20110921

REACTIONS (14)
  - FEBRILE NEUTROPENIA [None]
  - STOMATITIS [None]
  - MALAISE [None]
  - DECREASED APPETITE [None]
  - PYREXIA [None]
  - PALMAR-PLANTAR ERYTHRODYSAESTHESIA SYNDROME [None]
  - RENAL DISORDER [None]
  - HAEMOGLOBIN DECREASED [None]
  - PLATELET COUNT DECREASED [None]
  - NEUTROPHIL COUNT DECREASED [None]
  - WHITE BLOOD CELL COUNT DECREASED [None]
  - PAIN [None]
  - HICCUPS [None]
  - CONSTIPATION [None]
